FAERS Safety Report 25066628 (Version 1)
Quarter: 2025Q1

REPORT INFORMATION
  Report Type: Report from Study
  Country: CA (occurrence: CA)
  Receive Date: 20250312
  Receipt Date: 20250312
  Transmission Date: 20250409
  Serious: Yes (Hospitalization)
  Sender: ABBVIE
  Company Number: CA-ABBVIE-6166364

PATIENT
  Age: 87 Year
  Sex: Male

DRUGS (1)
  1. LUPRON [Suspect]
     Active Substance: LEUPROLIDE ACETATE
     Indication: Prostate cancer
     Dosage: DOSE STRENGTH: 30 MG
     Route: 058
     Dates: start: 20221018

REACTIONS (3)
  - Back injury [Unknown]
  - Spinal deformity [Unknown]
  - Fall [Unknown]

NARRATIVE: CASE EVENT DATE: 20250101
